FAERS Safety Report 8376485-5 (Version None)
Quarter: 2012Q1

REPORT INFORMATION
  Report Type: 
  Country: None (occurrence: None)
  Receive Date: 20120323
  Receipt Date: 20111114
  Transmission Date: 20120608
  Serious: Yes (Other)
  Sender: FDA-Public Use
  Company Number: 163-21880-11081122

PATIENT
  Age: 58 Year
  Sex: Female

DRUGS (6)
  1. ACYCLOVIR [Concomitant]
  2. REVLIMID [Suspect]
     Indication: MULTIPLE MYELOMA
     Dosage: 10 MG, 1 IN 1 D, PO
     Route: 048
     Dates: start: 20110511
  3. PREVACID [Concomitant]
  4. XANAX [Concomitant]
  5. SYNTHROID [Concomitant]
  6. VICODIN [Concomitant]

REACTIONS (3)
  - PRURITUS [None]
  - DEEP VEIN THROMBOSIS [None]
  - ALOPECIA [None]
